FAERS Safety Report 16863957 (Version 1)
Quarter: 2019Q3

REPORT INFORMATION
  Report Type: Spontaneous
  Country: US (occurrence: US)
  Receive Date: 20190927
  Receipt Date: 20190927
  Transmission Date: 20191005
  Serious: No
  Sender: FDA-Public Use
  Company Number: US-009507513-1909USA013491

PATIENT
  Age: 27 Year
  Sex: Female
  Weight: 82.54 kg

DRUGS (1)
  1. NUVARING [Suspect]
     Active Substance: ETHINYL ESTRADIOL\ETONOGESTREL
     Indication: CONTRACEPTION
     Dosage: STRENGTH:0.15/.12 (UNITS NOT PROVIDED)
     Route: 067
     Dates: start: 200909, end: 20190925

REACTIONS (1)
  - Ectropion of cervix [Not Recovered/Not Resolved]

NARRATIVE: CASE EVENT DATE: 20190925
